FAERS Safety Report 25941403 (Version 2)
Quarter: 2025Q4

REPORT INFORMATION
  Report Type: Spontaneous
  Country: RU (occurrence: RU)
  Receive Date: 20251020
  Receipt Date: 20251023
  Transmission Date: 20260118
  Serious: Yes (Other)
  Sender: PFIZER
  Company Number: RU-PFIZER INC-PV202500037188

PATIENT
  Age: 49 Year
  Sex: Female

DRUGS (2)
  1. PALBOCICLIB [Suspect]
     Active Substance: PALBOCICLIB
     Indication: Breast cancer
     Dosage: 125 MG
     Route: 048
     Dates: start: 20191001, end: 2023
  2. ZOLEDRONIC ACID [Concomitant]
     Active Substance: ZOLEDRONIC ACID

REACTIONS (2)
  - Haematotoxicity [Unknown]
  - Asthenia [Unknown]

NARRATIVE: CASE EVENT DATE: 20200201
